FAERS Safety Report 9867676 (Version 1)
Quarter: 2014Q1

REPORT INFORMATION
  Report Type: Spontaneous
  Country: US (occurrence: None)
  Receive Date: 20140203
  Receipt Date: 20140203
  Transmission Date: 20141002
  Serious: Yes (Other)
  Sender: FDA-Public Use
  Company Number: None

PATIENT
  Age: 43 Year
  Sex: Female
  Weight: 71.22 kg

DRUGS (1)
  1. DULOXETINE [Suspect]
     Route: 048
     Dates: start: 20140107, end: 20140123

REACTIONS (4)
  - Irritability [None]
  - Fatigue [None]
  - Chills [None]
  - Product substitution issue [None]
